FAERS Safety Report 9173383 (Version 1)
Quarter: 2013Q1

REPORT INFORMATION
  Report Type: Spontaneous
  Country: US (occurrence: None)
  Receive Date: 20130319
  Receipt Date: 20130319
  Transmission Date: 20140127
  Serious: Yes (Other)
  Sender: FDA-Public Use
  Company Number: None

PATIENT
  Age: 54 Year
  Sex: Male
  Weight: 102.06 kg

DRUGS (1)
  1. Z-PACK-ZITHROM [Suspect]
     Indication: GASTRIC INFECTION
     Route: 048
     Dates: start: 20130122, end: 20130126

REACTIONS (2)
  - Heart rate irregular [None]
  - Tachycardia [None]
